FAERS Safety Report 12427733 (Version 1)
Quarter: 2016Q2

REPORT INFORMATION
  Report Type: Spontaneous
  Country: US (occurrence: None)
  Receive Date: 20160601
  Receipt Date: 20160601
  Transmission Date: 20160815
  Serious: Yes (Life-Threatening)
  Sender: FDA-Public Use
  Company Number: None

PATIENT
  Age: 27 Year
  Sex: Female
  Weight: 45.36 kg

DRUGS (1)
  1. CYMBALTA [Suspect]
     Active Substance: DULOXETINE HYDROCHLORIDE
     Indication: FIBROMYALGIA
     Dates: start: 20100101, end: 20150513

REACTIONS (5)
  - Malaise [None]
  - Apparent death [None]
  - Impaired work ability [None]
  - Loss of consciousness [None]
  - Drug withdrawal syndrome [None]

NARRATIVE: CASE EVENT DATE: 20150513
